FAERS Safety Report 19823929 (Version 2)
Quarter: 2021Q3

REPORT INFORMATION
  Report Type: Spontaneous
  Country: JP (occurrence: JP)
  Receive Date: 20210913
  Receipt Date: 20210927
  Transmission Date: 20211014
  Serious: Yes (Hospitalization, Congenital Anomaly, Other)
  Sender: FDA-Public Use
  Company Number: JP-FERRINGPH-2021FE05845

PATIENT

DRUGS (1)
  1. PROPESS [Suspect]
     Active Substance: DINOPROSTONE
     Indication: INDUCTION OF CERVIX RIPENING
     Route: 064
     Dates: start: 20210304, end: 20210304

REACTIONS (1)
  - Right aortic arch [Not Recovered/Not Resolved]
